FAERS Safety Report 7077085-X (Version None)
Quarter: 2010Q4

REPORT INFORMATION
  Report Type: 
  Country: None (occurrence: None)
  Receive Date: 20101101
  Receipt Date: 20101019
  Transmission Date: 20110411
  Serious: Yes (Hospitalization)
  Sender: FDA-Public Use
  Company Number: PHFR2010GB00678

PATIENT
  Sex: Male

DRUGS (5)
  1. CLOZARIL [Suspect]
     Indication: SCHIZOPHRENIA
     Dosage: 250 MG, QD
     Dates: start: 20041112
  2. SULPIRIDE [Concomitant]
     Indication: SCHIZOPHRENIA
     Dosage: 400 MG, UNK
     Route: 048
     Dates: start: 20080101
  3. OMEPRAZOLE [Concomitant]
     Dosage: 40 MG, UNK
     Dates: start: 20090101
  4. DOMPERIDONE [Concomitant]
     Dosage: UNK
     Dates: start: 20090101
  5. IRON SUPPLEMENTS [Concomitant]
     Dosage: 400 MG, UNK
     Dates: start: 20090101

REACTIONS (17)
  - ANAEMIA [None]
  - ASTHENIA [None]
  - C-REACTIVE PROTEIN INCREASED [None]
  - DRUG DOSE OMISSION [None]
  - GASTROINTESTINAL HAEMORRHAGE [None]
  - HAEMATEMESIS [None]
  - HAEMOGLOBIN DECREASED [None]
  - HYPOGLYCAEMIA [None]
  - HYPOPHAGIA [None]
  - MALAISE [None]
  - PLATELET COUNT INCREASED [None]
  - REFUSAL OF TREATMENT BY PATIENT [None]
  - SYNCOPE [None]
  - TREATMENT NONCOMPLIANCE [None]
  - VOMITING [None]
  - WEIGHT DECREASED [None]
  - WHITE BLOOD CELL COUNT INCREASED [None]
